FAERS Safety Report 12904156 (Version 2)
Quarter: 2016Q4

REPORT INFORMATION
  Report Type: Spontaneous
  Country: SE (occurrence: SE)
  Receive Date: 20161102
  Receipt Date: 20161110
  Transmission Date: 20170207
  Serious: Yes (Other)
  Sender: FDA-Public Use
  Company Number: SE-GILEAD-2016-0240255

PATIENT
  Age: 60 Year
  Sex: Male

DRUGS (8)
  1. NORSPAN [Concomitant]
     Active Substance: BUPRENORPHINE
     Dosage: 10 MCG/HR, UNK
     Route: 062
  2. TRADOLAN [Concomitant]
     Active Substance: TRAMADOL
  3. IBUMETIN [Concomitant]
     Active Substance: IBUPROFEN
     Dosage: 600 MG, UNK
  4. PANODIL [Concomitant]
     Active Substance: ACETAMINOPHEN
     Dosage: 1 G, UNK
  5. OXASCAND [Concomitant]
     Active Substance: OXAZEPAM
  6. HARVONI [Suspect]
     Active Substance: LEDIPASVIR\SOFOSBUVIR
     Indication: HEPATITIS C
     Dosage: UNK
     Route: 065
     Dates: start: 20160617, end: 20160816
  7. DIVISUN [Concomitant]
  8. ZOPICLONE [Concomitant]
     Active Substance: ZOPICLONE

REACTIONS (1)
  - Hypoaesthesia [Not Recovered/Not Resolved]

NARRATIVE: CASE EVENT DATE: 20160801
